FAERS Safety Report 6812318-3 (Version None)
Quarter: 2010Q3

REPORT INFORMATION
  Report Type: 
  Country: None (occurrence: None)
  Receive Date: 20100701
  Receipt Date: 20100520
  Transmission Date: 20110219
  Serious: Yes (Death, Other)
  Sender: FDA-Public Use
  Company Number: US-BAXTER-2010BH001209

PATIENT
  Age: 79 Year
  Sex: Male
  Weight: 73 kg

DRUGS (38)
  1. HEPARIN SODIUM [Suspect]
     Indication: MYOCARDIAL INFARCTION
     Route: 040
     Dates: start: 20071230, end: 20080109
  2. HEPARIN SODIUM [Suspect]
     Indication: CATHETERISATION CARDIAC
     Route: 040
     Dates: start: 20071230, end: 20080109
  3. HEPARIN SODIUM [Suspect]
     Indication: INTRA-AORTIC BALLOON PLACEMENT
     Route: 040
     Dates: start: 20071230, end: 20080109
  4. HEPARIN SODIUM [Suspect]
     Indication: CORONARY ARTERY BYPASS
     Route: 040
     Dates: start: 20071230, end: 20080109
  5. HEPARIN SODIUM [Suspect]
     Route: 040
     Dates: start: 20071231, end: 20071231
  6. HEPARIN SODIUM [Suspect]
     Route: 040
     Dates: start: 20071231, end: 20071231
  7. HEPARIN SODIUM [Suspect]
     Route: 040
     Dates: start: 20071231, end: 20071231
  8. HEPARIN SODIUM [Suspect]
     Route: 040
     Dates: start: 20071231, end: 20071231
  9. HEPARIN SODIUM [Suspect]
     Route: 040
     Dates: start: 20071231, end: 20080107
  10. HEPARIN SODIUM [Suspect]
     Route: 040
     Dates: start: 20071231, end: 20080107
  11. HEPARIN SODIUM [Suspect]
     Route: 040
     Dates: start: 20071231, end: 20080107
  12. HEPARIN SODIUM [Suspect]
     Route: 040
     Dates: start: 20071231, end: 20080107
  13. HEPARIN SODIUM [Suspect]
     Route: 040
     Dates: start: 20080103, end: 20080103
  14. HEPARIN SODIUM [Suspect]
     Route: 040
     Dates: start: 20080103, end: 20080103
  15. HEPARIN SODIUM [Suspect]
     Route: 040
     Dates: start: 20080103, end: 20080103
  16. HEPARIN SODIUM [Suspect]
     Route: 040
     Dates: start: 20080103, end: 20080103
  17. HEPARIN SODIUM [Suspect]
     Route: 061
     Dates: start: 20080107, end: 20080107
  18. HEPARIN SODIUM [Suspect]
     Route: 061
     Dates: start: 20080107, end: 20080107
  19. HEPARIN SODIUM [Suspect]
     Route: 061
     Dates: start: 20080107, end: 20080107
  20. HEPARIN SODIUM [Suspect]
     Route: 061
     Dates: start: 20080107, end: 20080107
  21. HEPARIN SODIUM [Suspect]
     Route: 040
     Dates: start: 20080102, end: 20080102
  22. HEPARIN SODIUM [Suspect]
     Route: 040
     Dates: start: 20080102, end: 20080102
  23. HEPARIN SODIUM [Suspect]
     Route: 040
     Dates: start: 20080102, end: 20080102
  24. HEPARIN SODIUM [Suspect]
     Route: 040
     Dates: start: 20080102, end: 20080102
  25. HEPARIN SODIUM [Suspect]
     Route: 061
     Dates: start: 20080107, end: 20080107
  26. HEPARIN SODIUM [Suspect]
     Route: 061
     Dates: start: 20080107, end: 20080107
  27. HEPARIN SODIUM [Suspect]
     Route: 061
     Dates: start: 20080107, end: 20080107
  28. HEPARIN SODIUM [Suspect]
     Route: 061
     Dates: start: 20080107, end: 20080107
  29. HEPARIN SODIUM 5,000 UNITS IN DEXTROSE 5% [Suspect]
     Indication: MYOCARDIAL INFARCTION
     Route: 041
     Dates: start: 20071230, end: 20080107
  30. HEPARIN SODIUM [Suspect]
     Indication: PRODUCT USED FOR UNKNOWN INDICATION
     Route: 040
     Dates: start: 20071230, end: 20071230
  31. HEPARIN SODIUM [Suspect]
     Route: 065
     Dates: start: 20080107, end: 20080107
  32. HEPARIN SODIUM [Suspect]
     Route: 065
     Dates: start: 20080107, end: 20080107
  33. HEPARIN SODIUM [Suspect]
     Route: 058
     Dates: start: 20080108, end: 20080109
  34. GLUCOSAMINE [Concomitant]
     Indication: PRODUCT USED FOR UNKNOWN INDICATION
     Route: 048
  35. LOVASTATIN [Concomitant]
     Indication: PRODUCT USED FOR UNKNOWN INDICATION
     Route: 048
  36. GALANTAMINE HYDROBROMIDE [Concomitant]
     Indication: PRODUCT USED FOR UNKNOWN INDICATION
     Route: 048
  37. NAMENDA [Concomitant]
     Indication: PRODUCT USED FOR UNKNOWN INDICATION
     Route: 048
  38. ACETYLSALICYLIC ACID [Concomitant]
     Indication: PRODUCT USED FOR UNKNOWN INDICATION
     Route: 048

REACTIONS (8)
  - ANAEMIA [None]
  - BLOOD PRESSURE DECREASED [None]
  - CARDIAC ARREST [None]
  - HAEMODYNAMIC INSTABILITY [None]
  - RENAL FAILURE ACUTE [None]
  - RESPIRATORY FAILURE [None]
  - THROMBOCYTOPENIA [None]
  - WHITE BLOOD CELL DISORDER [None]
